FAERS Safety Report 8312112-0 (Version None)
Quarter: 2012Q2

REPORT INFORMATION
  Report Type: 
  Country: None (occurrence: None)
  Receive Date: 20120425
  Receipt Date: 20120403
  Transmission Date: 20120825
  Serious: Yes (Hospitalization, Other)
  Sender: FDA-Public Use
  Company Number: AU-ASTRAZENECA-2012SE11053

PATIENT
  Age: 859 Month
  Sex: Male

DRUGS (2)
  1. BRILINTA [Suspect]
     Route: 048
     Dates: start: 20120204, end: 20120204
  2. BRILINTA [Suspect]
     Route: 048
     Dates: start: 20120131, end: 20120202

REACTIONS (2)
  - DYSPNOEA [None]
  - SUFFOCATION FEELING [None]
